FAERS Safety Report 4392301-0 (Version None)
Quarter: 2004Q3

REPORT INFORMATION
  Report Type: 
  Country: None (occurrence: None)
  Receive Date: 20040701
  Receipt Date: 20040621
  Transmission Date: 20050211
  Serious: Yes (Hospitalization)
  Sender: FDA-Public Use
  Company Number: 2004UW12909

PATIENT
  Age: 76 Year
  Sex: Female
  Weight: 58.9676 kg

DRUGS (5)
  1. NEXIUM [Suspect]
     Indication: INTESTINAL HAEMORRHAGE
     Dates: start: 20040501
  2. ALTACE [Concomitant]
  3. TYLENOL [Concomitant]
  4. STOOL SOFTENER [Concomitant]
  5. MILK OF MAGNESIA TAB [Concomitant]

REACTIONS (12)
  - ABDOMINAL DISCOMFORT [None]
  - ANORECTAL DISORDER [None]
  - CONSTIPATION [None]
  - DIARRHOEA [None]
  - DIVERTICULITIS [None]
  - DRY MOUTH [None]
  - HEADACHE [None]
  - HYPERHIDROSIS [None]
  - NERVOUSNESS [None]
  - RECTAL HAEMORRHAGE [None]
  - STOMACH DISCOMFORT [None]
  - VULVOVAGINAL DISCOMFORT [None]
